FAERS Safety Report 4463965-8 (Version None)
Quarter: 2004Q3

REPORT INFORMATION
  Report Type: 
  Country: None (occurrence: None)
  Receive Date: 20040929
  Receipt Date: 20040916
  Transmission Date: 20050211
  Serious: Yes (Hospitalization)
  Sender: FDA-Public Use
  Company Number: 2004067461

PATIENT
  Age: 62 Year
  Sex: Female

DRUGS (1)
  1. LIPITOR [Suspect]
     Indication: DYSLIPIDAEMIA
     Dosage: 10 MG (10 MG, 1 IN 1 D), ORAL
     Route: 048
     Dates: start: 20031101, end: 20031201

REACTIONS (5)
  - AUTOIMMUNE HEPATITIS [None]
  - CHOLELITHIASIS [None]
  - MALAISE [None]
  - PAIN [None]
  - WEIGHT DECREASED [None]
